FAERS Safety Report 5385279-4 (Version None)
Quarter: 2007Q3

REPORT INFORMATION
  Report Type: 
  Country: None (occurrence: None)
  Receive Date: 20070709
  Receipt Date: 20070709
  Transmission Date: 20080115
  Serious: Yes (Hospitalization)
  Sender: FDA-Public Use
  Company Number: None

PATIENT
  Sex: Female
  Weight: 27.6 kg

DRUGS (6)
  1. DAUNORUBICIN HCL [Suspect]
     Dosage: 87 MG
  2. METHOTREXATE [Suspect]
     Dosage: 15 MG
  3. PEG-L-ASPARAGINASE (K-H) [Suspect]
     Dosage: 2500 MG
  4. PREDNISONE [Suspect]
     Dosage: 1680 MG
  5. VINCRISTINE SULFATE [Suspect]
     Dosage: 6 MG
  6. CYTARABINE [Suspect]
     Dosage: 70 MG

REACTIONS (3)
  - ABDOMINAL PAIN [None]
  - BLOOD BILIRUBIN INCREASED [None]
  - JAUNDICE [None]
